FAERS Safety Report 20495829 (Version 2)
Quarter: 2022Q1

REPORT INFORMATION
  Report Type: Report from Study
  Country: US (occurrence: US)
  Receive Date: 20220221
  Receipt Date: 20220325
  Transmission Date: 20220424
  Serious: No
  Sender: FDA-Public Use
  Company Number: US-BAUSCH-BL-2021-039869

PATIENT
  Age: 65 Year
  Sex: Female

DRUGS (1)
  1. XIFAXAN [Suspect]
     Active Substance: RIFAXIMIN
     Indication: Product used for unknown indication
     Route: 048
     Dates: end: 20211129

REACTIONS (3)
  - Ill-defined disorder [Unknown]
  - Therapy interrupted [Unknown]
  - Product distribution issue [Unknown]

NARRATIVE: CASE EVENT DATE: 20211129
